FAERS Safety Report 8328673-1 (Version None)
Quarter: 2012Q2

REPORT INFORMATION
  Report Type: 
  Country: None (occurrence: None)
  Receive Date: 20120502
  Receipt Date: 20120426
  Transmission Date: 20120825
  Serious: Yes (Death, Hospitalization)
  Sender: FDA-Public Use
  Company Number: US-CELGENEUS-163-21880-12032961

PATIENT
  Sex: Male

DRUGS (14)
  1. ALLOPURINOL [Concomitant]
     Route: 065
  2. FISH OIL [Concomitant]
     Route: 065
  3. PLAVIX [Concomitant]
     Route: 065
  4. REVLIMID [Suspect]
     Indication: MULTIPLE MYELOMA
     Dosage: 25 MILLIGRAM
     Route: 048
     Dates: start: 20110901, end: 20110901
  5. PRAVASTATIN [Concomitant]
     Route: 065
  6. CARDIZEM [Concomitant]
     Route: 041
  7. DECADRON [Concomitant]
     Route: 065
  8. COZAAR [Concomitant]
     Dosage: 75 MILLIGRAM
     Route: 065
  9. PRADAXA [Concomitant]
     Dosage: 75 MILLIGRAM
     Route: 065
  10. GLYBURIDE [Concomitant]
     Route: 065
  11. LOPRESSOR [Concomitant]
     Route: 065
  12. ASPIRIN [Concomitant]
     Route: 065
  13. PRAVACHOL [Concomitant]
     Dosage: 75 MILLIGRAM
     Route: 065
  14. LOSARTAN POTASSIUM [Concomitant]
     Route: 065

REACTIONS (4)
  - BLOOD GLUCOSE INCREASED [None]
  - SYNCOPE [None]
  - SEPTIC SHOCK [None]
  - HAEMORRHAGE INTRACRANIAL [None]
